FAERS Safety Report 6979204-X (Version None)
Quarter: 2010Q3

REPORT INFORMATION
  Report Type: 
  Country: None (occurrence: None)
  Receive Date: 20100908
  Receipt Date: 20100826
  Transmission Date: 20110219
  Serious: Yes (Hospitalization)
  Sender: FDA-Public Use
  Company Number: A-US2010-38688

PATIENT
  Age: 12 Year
  Sex: Female

DRUGS (2)
  1. TRACLEER [Suspect]
     Indication: PULMONARY ARTERIAL HYPERTENSION
     Dosage: ORAL
     Route: 048
     Dates: start: 20040826
  2. CALCIUM CHANNEL BLOCKERS [Concomitant]

REACTIONS (2)
  - DEVICE RELATED INFECTION [None]
  - OFF LABEL USE [None]
